FAERS Safety Report 7699191-9 (Version None)
Quarter: 2011Q3

REPORT INFORMATION
  Report Type: 
  Country: None (occurrence: None)
  Receive Date: 20110819
  Receipt Date: 20110727
  Transmission Date: 20111222
  Serious: No
  Sender: FDA-Public Use
  Company Number: US-BAYER-2011-059798

PATIENT
  Age: 24 Year
  Sex: Female

DRUGS (6)
  1. VITAMIN D [Concomitant]
  2. ORAL CONTRACEPTIVE NOS [Concomitant]
  3. ACETAMINOPHEN [Concomitant]
     Indication: PREMEDICATION
  4. ADVIL LIQUI-GELS [Concomitant]
     Indication: PREMEDICATION
  5. BETASERON [Suspect]
     Indication: MULTIPLE SCLEROSIS
     Dosage: 4 MIU, QOD
     Route: 058
     Dates: start: 20110620
  6. BETASERON [Suspect]
     Dosage: 6 MIU, QOD
     Route: 058

REACTIONS (6)
  - FEELING HOT [None]
  - ABDOMINAL DISTENSION [None]
  - FLATULENCE [None]
  - ERUCTATION [None]
  - INJECTION SITE PAIN [None]
  - DYSPEPSIA [None]
